FAERS Safety Report 21322423 (Version 3)
Quarter: 2022Q4

REPORT INFORMATION
  Report Type: Report from Study
  Country: US (occurrence: US)
  Receive Date: 20220912
  Receipt Date: 20221219
  Transmission Date: 20230113
  Serious: No
  Sender: FDA-Public Use
  Company Number: US-NOVARTISTESTPH-NVSC2022US203430

PATIENT
  Sex: Female

DRUGS (1)
  1. KESIMPTA [Suspect]
     Active Substance: OFATUMUMAB
     Indication: Multiple sclerosis
     Dosage: UNK
     Route: 058
     Dates: start: 20220622

REACTIONS (8)
  - Pain [Unknown]
  - Muscular weakness [Unknown]
  - Memory impairment [Unknown]
  - Feeling abnormal [Unknown]
  - Stress [Unknown]
  - Fatigue [Unknown]
  - Somnolence [Unknown]
  - Therapeutic response shortened [Unknown]
